FAERS Safety Report 5828351-4 (Version None)
Quarter: 2008Q3

REPORT INFORMATION
  Report Type: 
  Country: None (occurrence: None)
  Receive Date: 20080729
  Receipt Date: 20080729
  Transmission Date: 20090109
  Serious: Yes (Hospitalization)
  Sender: FDA-Public Use
  Company Number: None

PATIENT
  Age: 69 Year
  Sex: Female
  Weight: 83.18 kg

DRUGS (1)
  1. CISPLATIN [Suspect]
     Dosage: 164 MG IV
     Route: 042
     Dates: start: 20080513, end: 20080514

REACTIONS (2)
  - FEBRILE NEUTROPENIA [None]
  - RENAL FAILURE ACUTE [None]
